FAERS Safety Report 19026732 (Version 1)
Quarter: 2021Q1

REPORT INFORMATION
  Report Type: Spontaneous
  Country: PK (occurrence: PK)
  Receive Date: 20210318
  Receipt Date: 20210318
  Transmission Date: 20210420
  Serious: Yes (Other)
  Sender: FDA-Public Use
  Company Number: PK-PFIZER INC-2021261617

PATIENT

DRUGS (1)
  1. MERONEM [Suspect]
     Active Substance: MEROPENEM
     Dosage: UNK

REACTIONS (4)
  - Product container seal issue [Unknown]
  - Typhoid fever [Unknown]
  - Pyrexia [Unknown]
  - Poor quality product administered [Unknown]
